FAERS Safety Report 7790200-5 (Version None)
Quarter: 2011Q3

REPORT INFORMATION
  Report Type: 
  Country: None (occurrence: None)
  Receive Date: 20110930
  Receipt Date: 20110302
  Transmission Date: 20111222
  Serious: No
  Sender: FDA-Public Use
  Company Number: US-ASTRAZENECA-2008UW26934

PATIENT
  Age: 67 Year
  Sex: Female

DRUGS (16)
  1. DIFLUCAN [Concomitant]
  2. CALCIUM CITRATE [Concomitant]
  3. NORVASC [Concomitant]
  4. MILK THISTLE [Concomitant]
     Indication: LIVER DISORDER
  5. PHENAZOPYRIDINE HCL TAB [Concomitant]
  6. TOPROL-XL [Concomitant]
  7. HOMEOPATHY [Concomitant]
  8. SPIRULINA [Concomitant]
     Indication: ELECTROLYTE IMBALANCE
  9. ARIMIDEX [Suspect]
     Indication: BREAST CANCER
     Route: 048
     Dates: start: 20081117
  10. PRILOSEC [Suspect]
     Route: 048
  11. CIPROFLOXACIN [Concomitant]
  12. CALCIUM CARBONATE [Concomitant]
  13. LIBRAX [Concomitant]
  14. STEROIDS [Concomitant]
  15. AMBIEN [Concomitant]
  16. ZESTRIL [Concomitant]

REACTIONS (15)
  - ASTHENIA [None]
  - BLOOD CHOLESTEROL INCREASED [None]
  - DYSGEUSIA [None]
  - BREATH ODOUR [None]
  - PSORIASIS [None]
  - DYSPEPSIA [None]
  - LIP DISORDER [None]
  - WEIGHT INCREASED [None]
  - BONE DENSITY ABNORMAL [None]
  - PAROSMIA [None]
  - LOCALISED OEDEMA [None]
  - RASH [None]
  - URINARY TRACT INFECTION [None]
  - PERISTALSIS VISIBLE [None]
  - INSOMNIA [None]
